FAERS Safety Report 6840165-5 (Version None)
Quarter: 2010Q3

REPORT INFORMATION
  Report Type: 
  Country: None (occurrence: None)
  Receive Date: 20100714
  Receipt Date: 20100702
  Transmission Date: 20110219
  Serious: Yes (Other)
  Sender: FDA-Public Use
  Company Number: IT-CELGENEUS-083-20785-09042042

PATIENT
  Age: 71 Year

DRUGS (5)
  1. THALOMID [Suspect]
     Route: 048
  2. BORTEZOMIB [Suspect]
     Route: 065
  3. BORTEZOMIB [Suspect]
     Route: 065
  4. MELPHALAN [Suspect]
     Route: 065
  5. PREDNISONE [Suspect]
     Route: 065

REACTIONS (6)
  - CARDIAC DISORDER [None]
  - GASTROINTESTINAL DISORDER [None]
  - INFECTION [None]
  - NEUROPATHY PERIPHERAL [None]
  - NEUTROPENIA [None]
  - THROMBOCYTOPENIA [None]
